FAERS Safety Report 6098723-4 (Version None)
Quarter: 2009Q1

REPORT INFORMATION
  Report Type: 
  Country: None (occurrence: None)
  Receive Date: 20090302
  Receipt Date: 20090218
  Transmission Date: 20090719
  Serious: Yes (Hospitalization)
  Sender: FDA-Public Use
  Company Number: IL-ELI_LILLY_AND_COMPANY-IL200902005649

PATIENT
  Age: 53 Year
  Sex: Male
  Weight: 96 kg

DRUGS (4)
  1. BYETTA [Suspect]
     Indication: DIABETES MELLITUS
     Dosage: 5 UG, 2/D
     Route: 058
     Dates: start: 20080918
  2. GLUCOPHAGE [Concomitant]
     Dosage: UNK UNK, 2/D
     Route: 048
  3. AVANDIA [Concomitant]
     Dosage: UNK UNK, DAILY (1/D)
     Route: 048
  4. GLIBETIC [Concomitant]
     Dosage: UNK UNK, 2/D
     Route: 048

REACTIONS (1)
  - PANCREAS INFECTION [None]
